FAERS Safety Report 24796997 (Version 2)
Quarter: 2025Q1

REPORT INFORMATION
  Report Type: Spontaneous
  Country: KZ (occurrence: KZ)
  Receive Date: 20250101
  Receipt Date: 20250109
  Transmission Date: 20250408
  Serious: Yes (Hospitalization, Other)
  Sender: BIOGEN
  Company Number: KZ-BIOGEN-2024BI01295327

PATIENT
  Age: 12 Year
  Sex: Female
  Weight: 39 kg

DRUGS (1)
  1. SPINRAZA [Suspect]
     Active Substance: NUSINERSEN
     Indication: Spinal muscular atrophy
     Dosage: 12MG/5ML
     Route: 050
     Dates: start: 20210617

REACTIONS (4)
  - Encephalopathy [Unknown]
  - White blood cell disorder [Unknown]
  - Post lumbar puncture syndrome [Recovered/Resolved]
  - Scoliosis [Unknown]

NARRATIVE: CASE EVENT DATE: 20241219
